APPROVED DRUG PRODUCT: MEMANTINE HYDROCHLORIDE AND DONEPEZIL HYDROCHLORIDE
Active Ingredient: DONEPEZIL HYDROCHLORIDE; MEMANTINE HYDROCHLORIDE
Strength: 10MG;14MG
Dosage Form/Route: CAPSULE, EXTENDED RELEASE;ORAL
Application: A216901 | Product #001 | TE Code: AB
Applicant: XIAMEN LP PHARMACUETICAL CO LTD
Approved: Jul 15, 2025 | RLD: No | RS: No | Type: RX